FAERS Safety Report 23286564 (Version 1)
Quarter: 2023Q4

REPORT INFORMATION
  Report Type: Spontaneous
  Country: US (occurrence: US)
  Receive Date: 20231212
  Receipt Date: 20231212
  Transmission Date: 20240110
  Serious: No
  Sender: FDA-Public Use
  Company Number: US-SA-SAC20231205001347

PATIENT
  Age: 11 Year
  Sex: Female

DRUGS (2)
  1. DUPIXENT [Suspect]
     Active Substance: DUPILUMAB
     Indication: Dermatitis atopic
     Dosage: 400MG 1X
     Route: 058
     Dates: start: 20230720, end: 20230720
  2. DUPIXENT [Suspect]
     Active Substance: DUPILUMAB
     Dosage: 200MG QOW

REACTIONS (1)
  - Pruritus [Unknown]
